FAERS Safety Report 6299315-4 (Version None)
Quarter: 2009Q3

REPORT INFORMATION
  Report Type: 
  Country: None (occurrence: None)
  Receive Date: 20090806
  Receipt Date: 20090730
  Transmission Date: 20100115
  Serious: No
  Sender: FDA-Public Use
  Company Number: US-B.I. PHARMACEUTICALS,INC./RIDGEFIELD-2009-BP-09117BP

PATIENT
  Sex: Female

DRUGS (6)
  1. ZANTAC 150 [Suspect]
     Indication: GASTROOESOPHAGEAL REFLUX DISEASE
     Dosage: 150 MG
     Route: 048
     Dates: start: 20071201
  2. ZANTAC 150 [Suspect]
     Indication: DYSPEPSIA
  3. PHENOBARBITAL [Concomitant]
     Indication: EPILEPSY
     Dosage: 360 MG
     Route: 048
     Dates: start: 19790101
  4. VITAMIN B-12 [Concomitant]
     Indication: ANAEMIA
     Route: 030
     Dates: start: 19840101
  5. INDERAL [Concomitant]
     Indication: MITRAL VALVE PROLAPSE
     Route: 048
  6. SYNTHROID [Concomitant]
     Indication: HYPOTHYROIDISM
     Dosage: 0.05 MG
     Route: 048
     Dates: start: 19890101

REACTIONS (2)
  - CONTUSION [None]
  - GINGIVAL BLEEDING [None]
